FAERS Safety Report 11860821 (Version 2)
Quarter: 2015Q4

REPORT INFORMATION
  Report Type: Spontaneous
  Country: IT (occurrence: IT)
  Receive Date: 20151222
  Receipt Date: 20151224
  Transmission Date: 20160305
  Serious: Yes (Life-Threatening)
  Sender: FDA-Public Use
  Company Number: IT-SA-2015SA215795

PATIENT
  Age: 69 Year
  Sex: Female
  Weight: 90 kg

DRUGS (13)
  1. LASIX [Suspect]
     Active Substance: FUROSEMIDE
     Route: 048
     Dates: start: 20140726, end: 20140801
  2. PANTOPRAZOLE [Concomitant]
     Active Substance: PANTOPRAZOLE SODIUM
  3. METFORMIN [Suspect]
     Active Substance: METFORMIN HYDROCHLORIDE
     Indication: TYPE 2 DIABETES MELLITUS
     Route: 048
     Dates: start: 20140101, end: 20140801
  4. RAMIPRIL. [Concomitant]
     Active Substance: RAMIPRIL
  5. SOLOSTAR [Concomitant]
     Active Substance: DEVICE
     Dates: start: 20140101, end: 20140801
  6. AMARYL [Concomitant]
     Active Substance: GLIMEPIRIDE
     Dosage: 4 MG
     Route: 048
  7. ARIAL [Concomitant]
     Dosage: 25 MCG / DISBURSEMENTS PRESSURIZED SUSPENSION FOR INHALATION
  8. ZYLORIC [Concomitant]
     Active Substance: ALLOPURINOL
     Dosage: 300 MG DIVISIBLE TABLETS
  9. LUVION [Concomitant]
     Active Substance: CANRENONE
     Dosage: 50 MG
  10. LANTUS SOLOSTAR [Concomitant]
     Active Substance: INSULIN GLARGINE
     Route: 058
     Dates: start: 20140101, end: 20140801
  11. MEDROL [Concomitant]
     Active Substance: METHYLPREDNISOLONE
     Dosage: 16 MG
  12. EUTIROX [Concomitant]
     Active Substance: LEVOTHYROXINE SODIUM
     Dosage: 75 MCG
  13. GLUCOBAY [Concomitant]
     Active Substance: ACARBOSE
     Dosage: 100 MG
     Route: 048
     Dates: start: 20140101, end: 20140801

REACTIONS (2)
  - Hypoglycaemia [Recovered/Resolved]
  - Lactic acidosis [Recovered/Resolved]

NARRATIVE: CASE EVENT DATE: 20140801
